FAERS Safety Report 5163763-6 (Version None)
Quarter: 2006Q4

REPORT INFORMATION
  Report Type: 
  Country: None (occurrence: None)
  Receive Date: 20061204
  Receipt Date: 20061005
  Transmission Date: 20070319
  Serious: Yes (Hospitalization, Other)
  Sender: FDA-Public Use
  Company Number: 2006SE05429

PATIENT
  Age: 607 Month
  Sex: Female

DRUGS (7)
  1. NEXIUM [Suspect]
     Indication: EPIGASTRIC DISCOMFORT
     Route: 048
     Dates: start: 20060101
  2. NEXIUM [Suspect]
     Indication: GASTROOESOPHAGEAL REFLUX DISEASE
     Route: 048
     Dates: start: 20060101
  3. NEXIUM [Suspect]
     Route: 048
     Dates: start: 20060101
  4. NEXIUM [Suspect]
     Route: 048
     Dates: start: 20060101
  5. NEXIUM [Suspect]
     Route: 048
     Dates: start: 20060101
  6. NEXIUM [Suspect]
     Route: 048
     Dates: start: 20060101
  7. DECADRON [Concomitant]

REACTIONS (4)
  - DUODENITIS [None]
  - GASTRITIS [None]
  - PEPTIC ULCER HAEMORRHAGE [None]
  - PLATELET COUNT DECREASED [None]
